FAERS Safety Report 5922470-X (Version None)
Quarter: 2008Q4

REPORT INFORMATION
  Report Type: 
  Country: None (occurrence: None)
  Receive Date: 20081017
  Receipt Date: 20081007
  Transmission Date: 20090506
  Serious: Yes (Other)
  Sender: FDA-Public Use
  Company Number: CA-JNJFOC-20081002300

PATIENT
  Age: 51 Year
  Sex: Male

DRUGS (2)
  1. REMICADE [Suspect]
     Indication: HEPATIC CIRRHOSIS
     Route: 042
  2. UNSPECIFIED MEDICATION [Concomitant]

REACTIONS (1)
  - WEIGHT INCREASED [None]
